FAERS Safety Report 5611082-3 (Version None)
Quarter: 2008Q1

REPORT INFORMATION
  Report Type: 
  Country: None (occurrence: None)
  Receive Date: 20080129
  Receipt Date: 20080111
  Transmission Date: 20080703
  Serious: No
  Sender: FDA-Public Use
  Company Number: TPA2007A02048

PATIENT
  Age: 54 Year
  Sex: Female
  Weight: 85.7298 kg

DRUGS (10)
  1. ACTOS [Suspect]
     Indication: TYPE 2 DIABETES MELLITUS
     Dosage: 30MG, QAM, PER ORAL
     Route: 048
     Dates: start: 20070601, end: 20071001
  2. EFFEXOR [Concomitant]
  3. ATIVAN [Concomitant]
  4. BENTYL [Concomitant]
  5. VERAPAMIL [Concomitant]
  6. ATARAX [Concomitant]
  7. LISINOPRIL [Concomitant]
  8. NITROGLYCERIN (CORONARY VASODILATORS) [Concomitant]
  9. FENOFIBRATE [Concomitant]
  10. GERICARE STOOL SOFTNER (DOCUSATE SODIUM) [Concomitant]

REACTIONS (10)
  - ABDOMINAL DISTENSION [None]
  - AGITATION [None]
  - BLOOD TRIGLYCERIDES INCREASED [None]
  - CONSTIPATION [None]
  - DYSPNOEA [None]
  - ERUCTATION [None]
  - FEELING ABNORMAL [None]
  - HEPATOTOXICITY [None]
  - NAUSEA [None]
  - VOMITING [None]
